FAERS Safety Report 12774707 (Version 1)
Quarter: 2016Q3

REPORT INFORMATION
  Report Type: Spontaneous
  Country: US (occurrence: US)
  Receive Date: 20160923
  Receipt Date: 20160923
  Transmission Date: 20161109
  Serious: Yes (Hospitalization, Other)
  Sender: FDA-Public Use
  Company Number: US-BAYER-2016-183455

PATIENT
  Age: 61 Year
  Sex: Male
  Weight: 138.78 kg

DRUGS (2)
  1. DR. SCHOLLS CLEAR AWAY WART REMOVER ULTRA THIN DISCS [Suspect]
     Active Substance: SALICYLIC ACID
     Indication: THERAPEUTIC SKIN CARE TOPICAL
     Dosage: UNK, MULTIPLE TIME PER DAY
  2. DR. SCHOLLS CLEAR AWAY WART REMOVER ULTRA THIN DISCS [Suspect]
     Active Substance: SALICYLIC ACID
     Indication: THERAPEUTIC SKIN CARE TOPICAL
     Dosage: UNK UNK, BID
     Route: 061
     Dates: start: 20160903, end: 20160906

REACTIONS (5)
  - Cold sweat [Recovering/Resolving]
  - Vertigo [Recovering/Resolving]
  - Balance disorder [Recovering/Resolving]
  - Toxicity to various agents [None]
  - Hypokalaemia [None]

NARRATIVE: CASE EVENT DATE: 201609
